FAERS Safety Report 25566080 (Version 1)
Quarter: 2025Q3

REPORT INFORMATION
  Report Type: Spontaneous
  Country: JP (occurrence: JP)
  Receive Date: 20250716
  Receipt Date: 20250716
  Transmission Date: 20251020
  Serious: Yes (Other)
  Sender: OTSUKA
  Company Number: None

PATIENT
  Age: 5 Decade
  Sex: Female
  Weight: 55 kg

DRUGS (6)
  1. REXULTI [Suspect]
     Active Substance: BREXPIPRAZOLE
     Indication: Neuropsychological symptoms
     Route: 065
  2. OLANZAPINE [Suspect]
     Active Substance: OLANZAPINE
     Indication: Affect lability
     Route: 065
  3. PEROSPIRONE HYDROCHLORIDE [Suspect]
     Active Substance: PEROSPIRONE HYDROCHLORIDE
     Indication: Hyponatraemia
     Route: 065
  4. RISPERIDONE [Suspect]
     Active Substance: RISPERIDONE
     Indication: Hallucination
     Route: 048
  5. RISPERIDONE [Suspect]
     Active Substance: RISPERIDONE
     Indication: Paranoia
  6. CYCLOPHOSPHAMIDE [Concomitant]
     Active Substance: CYCLOPHOSPHAMIDE
     Indication: Product used for unknown indication
     Route: 065

REACTIONS (5)
  - Tardive akathisia [Recovering/Resolving]
  - Renal impairment [Recovering/Resolving]
  - Condition aggravated [Recovering/Resolving]
  - Hyponatraemia [Recovering/Resolving]
  - Anaemia [Recovering/Resolving]
